FAERS Safety Report 8397182-6 (Version None)
Quarter: 2012Q2

REPORT INFORMATION
  Report Type: 
  Country: None (occurrence: None)
  Receive Date: 20120530
  Receipt Date: 20120518
  Transmission Date: 20120825
  Serious: Yes (Life-Threatening)
  Sender: FDA-Public Use
  Company Number: JP-PFIZER INC-2012078353

PATIENT
  Age: 72 Year
  Sex: Female

DRUGS (12)
  1. VERAPAMIL HCL [Concomitant]
     Dosage: UNK
  2. SIGMART [Concomitant]
     Dosage: UNK
  3. ALFAROL [Concomitant]
     Dosage: UNK
  4. ADALAT [Concomitant]
     Dosage: UNK
  5. BISOPROLOL FUMARATE [Concomitant]
     Dosage: UNK
  6. ASPIRIN [Concomitant]
     Dosage: UNK
  7. MIGLITOL [Suspect]
     Indication: DIABETES MELLITUS
     Dosage: 225 MG, DAILY
     Route: 048
     Dates: end: 20120315
  8. AVAPRO [Concomitant]
     Dosage: UNK
  9. CALCIUM CARBONATE [Concomitant]
     Dosage: UNK
  10. DILTIAZEM HYDROCHLORIDE [Concomitant]
     Dosage: UNK
  11. PLETAL [Concomitant]
     Dosage: UNK
  12. LIVALO [Concomitant]
     Dosage: UNK

REACTIONS (4)
  - INTESTINAL PERFORATION [None]
  - INTESTINAL ISCHAEMIA [None]
  - PNEUMATOSIS INTESTINALIS [None]
  - PROCEDURAL PAIN [None]
